FAERS Safety Report 8953616 (Version 1)
Quarter: 2012Q4

REPORT INFORMATION
  Report Type: Report from Study
  Country: CA (occurrence: CA)
  Receive Date: 20121206
  Receipt Date: 20121206
  Transmission Date: 20130627
  Serious: Yes (Other)
  Sender: FDA-Public Use
  Company Number: CA-ROCHE-1164127

PATIENT
  Sex: Male
  Weight: 84 kg

DRUGS (1)
  1. OMALIZUMAB [Suspect]
     Indication: ASTHMA
     Route: 058
     Dates: start: 20060914

REACTIONS (5)
  - Diabetes mellitus [Unknown]
  - Cough [Unknown]
  - Bronchitis [Unknown]
  - Anxiety [Unknown]
  - Increased upper airway secretion [Unknown]
